FAERS Safety Report 21396379 (Version 1)
Quarter: 2022Q3

REPORT INFORMATION
  Report Type: Spontaneous
  Country: US (occurrence: US)
  Receive Date: 20220930
  Receipt Date: 20220930
  Transmission Date: 20221026
  Serious: Yes (Death, Hospitalization, Other)
  Sender: FDA-Public Use
  Company Number: US-UNITED THERAPEUTICS-UNT-2022-022299

PATIENT
  Age: 25 Year
  Sex: Female

DRUGS (6)
  1. REMODULIN [Suspect]
     Active Substance: TREPROSTINIL
     Indication: Heritable pulmonary arterial hypertension
     Dosage: UNK, CONTINUING
     Route: 041
  2. REMODULIN [Suspect]
     Active Substance: TREPROSTINIL
     Dosage: 0.040 ?G/KG, CONTINUING
     Route: 041
  3. REMODULIN [Suspect]
     Active Substance: TREPROSTINIL
     Dosage: 0.036 ?G/KG, CONTINUING
     Route: 041
  4. MACITENTAN [Suspect]
     Active Substance: MACITENTAN
     Indication: Heritable pulmonary arterial hypertension
     Dosage: 10 MG, DAILY
     Route: 048
  5. RIOCIGUAT [Suspect]
     Active Substance: RIOCIGUAT
     Indication: Heritable pulmonary arterial hypertension
     Dosage: 2.5 MG, TID
     Route: 048
  6. EPOPROSTENOL [Concomitant]
     Active Substance: EPOPROSTENOL
     Indication: Heritable pulmonary arterial hypertension
     Dosage: 0.05 MCG/KG/MIN

REACTIONS (2)
  - Septic shock [Fatal]
  - Hypotension [Unknown]
